FAERS Safety Report 13426962 (Version 2)
Quarter: 2017Q2

REPORT INFORMATION
  Report Type: Spontaneous
  Country: US (occurrence: US)
  Receive Date: 20170411
  Receipt Date: 20170516
  Transmission Date: 20170830
  Serious: No
  Sender: FDA-Public Use
  Company Number: US-BIO PRODUCTS LABORATORY LTD-1065262

PATIENT
  Age: 59 Year
  Sex: Male

DRUGS (10)
  1. GABAPENTIN. [Concomitant]
     Active Substance: GABAPENTIN
  2. VITAMIN B12 [Concomitant]
     Active Substance: CYANOCOBALAMIN
  3. METOPROLOL TARTRATE. [Concomitant]
     Active Substance: METOPROLOL TARTRATE
  4. TAPENTADOL [Concomitant]
     Active Substance: TAPENTADOL
  5. ATORVASTATIN [Concomitant]
     Active Substance: ATORVASTATIN
  6. LISINOPRIL. [Concomitant]
     Active Substance: LISINOPRIL
  7. FISH OIL [Concomitant]
     Active Substance: FISH OIL
  8. EZETIMIBE. [Concomitant]
     Active Substance: EZETIMIBE
  9. GAMMAPLEX [Suspect]
     Active Substance: HUMAN IMMUNOGLOBULIN G
     Route: 042
     Dates: start: 20170120, end: 20170329
  10. ASPIRIN. [Concomitant]
     Active Substance: ASPIRIN

REACTIONS (4)
  - Nausea [Unknown]
  - Rash maculo-papular [Unknown]
  - Rash pruritic [Unknown]
  - Influenza like illness [Unknown]

NARRATIVE: CASE EVENT DATE: 20170308
